FAERS Safety Report 5135914-0 (Version None)
Quarter: 2006Q4

REPORT INFORMATION
  Report Type: 
  Country: None (occurrence: None)
  Receive Date: 20061019
  Receipt Date: 20061012
  Transmission Date: 20070319
  Serious: Yes (Death)
  Sender: FDA-Public Use
  Company Number: CAWYE227613OCT06

PATIENT
  Age: 73 Year
  Sex: Female

DRUGS (1)
  1. PREMARIN [Suspect]
     Dosage: 0.625 MG
     Dates: start: 19740101, end: 20040101

REACTIONS (4)
  - BREAST CANCER STAGE I [None]
  - PULMONARY EMBOLISM [None]
  - RENAL CELL CARCINOMA STAGE UNSPECIFIED [None]
  - THERAPY CESSATION [None]
